FAERS Safety Report 10956084 (Version 1)
Quarter: 2015Q1

REPORT INFORMATION
  Report Type: Spontaneous
  Country: BR (occurrence: BR)
  Receive Date: 20150326
  Receipt Date: 20150326
  Transmission Date: 20150721
  Serious: Yes (Other)
  Sender: FDA-Public Use
  Company Number: BR-BAYER-2014-043394

PATIENT
  Age: 32 Year
  Sex: Female

DRUGS (2)
  1. YAZ [Suspect]
     Active Substance: DROSPIRENONE\ETHINYL ESTRADIOL
     Indication: PREMENSTRUAL SYNDROME
  2. YAZ [Suspect]
     Active Substance: DROSPIRENONE\ETHINYL ESTRADIOL
     Indication: CONTRACEPTION
     Dosage: 1 DF, QD, 24DAYS-4 DAYS BREAK
     Route: 048
     Dates: end: 20140319

REACTIONS (13)
  - Hypomenorrhoea [Recovered/Resolved]
  - Cervix dystocia [None]
  - Feeling abnormal [None]
  - Haemorrhage in pregnancy [Recovered/Resolved]
  - Abdominal pain [Recovered/Resolved]
  - Amenorrhoea [Recovered/Resolved]
  - Amenorrhoea [Recovered/Resolved]
  - Breast pain [Recovered/Resolved]
  - Amniorrhexis [None]
  - Pregnancy on oral contraceptive [Recovered/Resolved]
  - Drug ineffective [None]
  - Nausea [Recovered/Resolved]
  - Premature separation of placenta [Recovered/Resolved]

NARRATIVE: CASE EVENT DATE: 2013
